FAERS Safety Report 17631894 (Version 3)
Quarter: 2020Q2

REPORT INFORMATION
  Report Type: Report from Study
  Country: GH (occurrence: GH)
  Receive Date: 20200406
  Receipt Date: 20200604
  Transmission Date: 20200713
  Serious: Yes (Death, Other)
  Sender: FDA-Public Use
  Company Number: GH-JNJFOC-20200336852

PATIENT
  Age: 67 Year
  Sex: Male

DRUGS (1)
  1. ZYTIGA [Suspect]
     Active Substance: ABIRATERONE ACETATE
     Indication: PROSTATE CANCER
     Dosage: NDC NO: 124822668625.
     Route: 048
     Dates: start: 202001

REACTIONS (3)
  - Pain [Not Recovered/Not Resolved]
  - Rash [Recovering/Resolving]
  - Death [Fatal]
